FAERS Safety Report 17221942 (Version 1)
Quarter: 2020Q1

REPORT INFORMATION
  Report Type: Report from Study
  Country: US (occurrence: US)
  Receive Date: 20200101
  Receipt Date: 20200101
  Transmission Date: 20200409
  Serious: Yes (Death)
  Sender: FDA-Public Use
  Company Number: US-ROCHE-2510244

PATIENT
  Age: 18 Year
  Sex: Male

DRUGS (3)
  1. VALGANCICLOVIR. [Suspect]
     Active Substance: VALGANCICLOVIR
     Indication: HODGKIN^S DISEASE RECURRENT
     Route: 048
  2. FOSCARNET [Concomitant]
     Active Substance: FOSCARNET
     Indication: HODGKIN^S DISEASE RECURRENT
     Route: 042
  3. GANCICLOVIR. [Suspect]
     Active Substance: GANCICLOVIR
     Indication: HODGKIN^S DISEASE RECURRENT
     Dosage: (5MG/KG EVERY 12 HOURS)
     Route: 042
     Dates: start: 20110912, end: 20120224

REACTIONS (2)
  - Pyrexia [Unknown]
  - Drug resistance [Fatal]
